FAERS Safety Report 6897856-X (Version None)
Quarter: 2010Q3

REPORT INFORMATION
  Report Type: 
  Country: None (occurrence: None)
  Receive Date: 20100802
  Receipt Date: 20070726
  Transmission Date: 20110219
  Serious: No
  Sender: FDA-Public Use
  Company Number: US-PFIZER INC-2007053819

PATIENT
  Sex: Female

DRUGS (5)
  1. LYRICA [Suspect]
     Dates: start: 20070608
  2. XANAX [Concomitant]
  3. TRAMADOL HYDROCHLORIDE [Concomitant]
  4. SEROQUEL [Concomitant]
  5. CYMBALTA [Concomitant]

REACTIONS (2)
  - DIZZINESS [None]
  - DRUG INEFFECTIVE [None]
